FAERS Safety Report 7652227-3 (Version None)
Quarter: 2011Q3

REPORT INFORMATION
  Report Type: 
  Country: None (occurrence: None)
  Receive Date: 20110803
  Receipt Date: 20110725
  Transmission Date: 20111222
  Serious: Yes (Hospitalization, Other)
  Sender: FDA-Public Use
  Company Number: US-BAYER-201013025NA

PATIENT
  Age: 40 Year
  Sex: Female
  Weight: 82.54 kg

DRUGS (2)
  1. YAZ [Suspect]
     Indication: MENSTRUAL DISORDER
     Route: 048
     Dates: start: 20071201, end: 20080915
  2. EFFEXOR [Concomitant]
     Dosage: UNK
     Dates: start: 20040101

REACTIONS (4)
  - CHOLECYSTITIS CHRONIC [None]
  - GALLBLADDER DISORDER [None]
  - CEREBRAL THROMBOSIS [None]
  - TRANSIENT ISCHAEMIC ATTACK [None]
